FAERS Safety Report 20428142 (Version 1)
Quarter: 2022Q1

REPORT INFORMATION
  Report Type: Other
  Country: US (occurrence: None)
  Receive Date: 20220204
  Receipt Date: 20220204
  Transmission Date: 20220424
  Serious: Yes (Death)
  Sender: FDA-Public Use
  Company Number: US-ROCHE-3014733

PATIENT
  Age: 59 Year
  Sex: Female

DRUGS (1)
  1. OCREVUS [Suspect]
     Active Substance: OCRELIZUMAB
     Indication: Multiple sclerosis
     Dosage: THAN 600 MG EVERY 6 MONTHS
     Route: 065
     Dates: start: 20190731

REACTIONS (1)
  - Death [Fatal]

NARRATIVE: CASE EVENT DATE: 20211115
